FAERS Safety Report 11441034 (Version 1)
Quarter: 2015Q3

REPORT INFORMATION
  Report Type: Spontaneous
  Country: US (occurrence: US)
  Receive Date: 20150821
  Receipt Date: 20150821
  Transmission Date: 20151125
  Serious: Yes (Other)
  Sender: FDA-Public Use
  Company Number: US-ELI_LILLY_AND_COMPANY-US200801003920

PATIENT
  Age: 50 Year
  Sex: Male

DRUGS (4)
  1. CYCLOBENZAPRINE [Concomitant]
     Active Substance: CYCLOBENZAPRINE
     Indication: INSOMNIA
  2. CIPRO [Concomitant]
     Active Substance: CIPROFLOXACIN HYDROCHLORIDE
     Indication: EYE INFECTION
  3. CYMBALTA [Suspect]
     Active Substance: DULOXETINE HYDROCHLORIDE
     Indication: PAIN
     Dosage: 30 MG, UNK
     Dates: start: 200509
  4. CYMBALTA [Suspect]
     Active Substance: DULOXETINE HYDROCHLORIDE
     Dosage: 60 MG, UNK

REACTIONS (9)
  - Suicidal ideation [Unknown]
  - Irritability [Unknown]
  - Dementia [Unknown]
  - Seizure [Unknown]
  - Abnormal behaviour [Unknown]
  - Sexual dysfunction [Unknown]
  - Amnesia [Unknown]
  - Feeling abnormal [Unknown]
  - Hostility [Unknown]
